FAERS Safety Report 16156737 (Version 2)
Quarter: 2019Q2

REPORT INFORMATION
  Report Type: Spontaneous
  Country: TR (occurrence: TR)
  Receive Date: 20190404
  Receipt Date: 20190412
  Transmission Date: 20190711
  Serious: Yes (Hospitalization)
  Sender: FDA-Public Use
  Company Number: PHHY2019TR076108

PATIENT
  Age: 30 Month
  Sex: Female

DRUGS (1)
  1. CLONAZEPAM. [Suspect]
     Active Substance: CLONAZEPAM
     Indication: PRODUCT USED FOR UNKNOWN INDICATION
     Dosage: UNK
     Route: 065

REACTIONS (15)
  - Gait disturbance [Recovered/Resolved]
  - Somnolence [Recovered/Resolved]
  - Altered state of consciousness [Recovered/Resolved]
  - Coma scale abnormal [Recovered/Resolved]
  - Overdose [Recovered/Resolved]
  - Sinus tachycardia [Recovered/Resolved]
  - Hyporeflexia [Recovered/Resolved]
  - Encephalitis [Recovered/Resolved]
  - Asthenia [Recovered/Resolved]
  - Electrocardiogram QT prolonged [Recovered/Resolved]
  - Syncope [Recovered/Resolved]
  - Hypotonia [Recovered/Resolved]
  - Toxicity to various agents [Recovered/Resolved]
  - Coma [Recovered/Resolved]
  - Fall [Recovered/Resolved]
